FAERS Safety Report 21011700 (Version 1)
Quarter: 2022Q3

REPORT INFORMATION
  Report Type: Report from Study
  Country: MX (occurrence: MX)
  Receive Date: 20220627
  Receipt Date: 20220627
  Transmission Date: 20221027
  Serious: Yes (Other)
  Sender: FDA-Public Use
  Company Number: MX-NOVARTISPH-NVSC2022MX120178

PATIENT
  Sex: Male

DRUGS (2)
  1. TASIGNA [Suspect]
     Active Substance: NILOTINIB
     Indication: Chronic myeloid leukaemia
     Dosage: 2 DOSAGE FORM, Q12H
     Route: 048
  2. TASIGNA [Suspect]
     Active Substance: NILOTINIB
     Dosage: UNK
     Route: 048

REACTIONS (12)
  - Herpes virus infection [Unknown]
  - Skin burning sensation [Unknown]
  - Sensitive skin [Unknown]
  - Pain [Unknown]
  - Blister [Unknown]
  - Neuropathy peripheral [Unknown]
  - Gait disturbance [Unknown]
  - Pain in extremity [Unknown]
  - Hypoaesthesia [Unknown]
  - Radiculopathy [Unknown]
  - Gastrointestinal inflammation [Unknown]
  - Colitis [Unknown]
